FAERS Safety Report 9180214 (Version 2)
Quarter: 2013Q2

REPORT INFORMATION
  Report Type: Spontaneous
  Country: US (occurrence: US)
  Receive Date: 20130322
  Receipt Date: 20130530
  Transmission Date: 20140414
  Serious: No
  Sender: FDA-Public Use
  Company Number: US-009507513-1303USA007952

PATIENT
  Age: 25 Year
  Sex: Female
  Weight: 64.4 kg

DRUGS (1)
  1. NEXPLANON [Suspect]
     Indication: CONTRACEPTION
     Dosage: UNK
     Route: 059
     Dates: start: 20121210

REACTIONS (6)
  - Photophobia [Unknown]
  - Pyelonephritis [Recovered/Resolved]
  - Chills [Recovered/Resolved]
  - Migraine [Unknown]
  - Nausea [Unknown]
  - Back pain [Recovered/Resolved]
